FAERS Safety Report 12967245 (Version 1)
Quarter: 2016Q4

REPORT INFORMATION
  Report Type: Report from Study
  Country: US (occurrence: US)
  Receive Date: 20161123
  Receipt Date: 20161123
  Transmission Date: 20170207
  Serious: Yes (Hospitalization)
  Sender: FDA-Public Use
  Company Number: US-UCBSA-2016041546

PATIENT
  Age: 37 Year
  Sex: Male
  Weight: 109 kg

DRUGS (2)
  1. XALATAN [Concomitant]
     Active Substance: LATANOPROST
     Indication: GLAUCOMA
     Dosage: UNK
  2. LEVETIRACETAM. [Suspect]
     Active Substance: LEVETIRACETAM
     Indication: SEIZURE
     Dosage: 1000 MG, 2X/DAY (BID)
     Route: 048
     Dates: start: 200904, end: 201610

REACTIONS (3)
  - Off label use [Unknown]
  - Seizure [Recovering/Resolving]
  - Localised infection [Recovering/Resolving]

NARRATIVE: CASE EVENT DATE: 200904
